FAERS Safety Report 9676404 (Version 1)
Quarter: 2013Q4

REPORT INFORMATION
  Report Type: Spontaneous
  Country: US (occurrence: None)
  Receive Date: 20131106
  Receipt Date: 20131106
  Transmission Date: 20140711
  Serious: Yes (Death, Other)
  Sender: FDA-Public Use
  Company Number: HA13-380-AE

PATIENT
  Age: 58 Year
  Sex: Male
  Weight: 81.65 kg

DRUGS (1)
  1. SMZ/TMP [Suspect]
     Indication: CYSTITIS
     Route: 048
     Dates: start: 20131030, end: 20130906

REACTIONS (9)
  - Exposure during pregnancy [None]
  - Pyrexia [None]
  - Neck mass [None]
  - Rash [None]
  - Diarrhoea [None]
  - Hypersensitivity [None]
  - Crying [None]
  - Sinus disorder [None]
  - Foetal death [None]
